FAERS Safety Report 14063177 (Version 2)
Quarter: 2018Q2

REPORT INFORMATION
  Report Type: Spontaneous
  Country: US (occurrence: US)
  Receive Date: 20171009
  Receipt Date: 20180619
  Transmission Date: 20180711
  Serious: Yes (Hospitalization)
  Sender: FDA-Public Use
  Company Number: US-JNJFOC-20171005485

PATIENT
  Age: 58 Year
  Sex: Male
  Weight: 92.3 kg

DRUGS (1)
  1. INVOKANA [Suspect]
     Active Substance: CANAGLIFLOZIN
     Indication: TYPE 2 DIABETES MELLITUS
     Dosage: IN VARYING DOSES OF 100 MG AND 300 MG
     Route: 048
     Dates: start: 20160804

REACTIONS (4)
  - Leg amputation [Unknown]
  - Treatment noncompliance [Unknown]
  - Osteomyelitis [Recovering/Resolving]
  - Toe amputation [Unknown]

NARRATIVE: CASE EVENT DATE: 20170121
